FAERS Safety Report 14890178 (Version 1)
Quarter: 2018Q2

REPORT INFORMATION
  Report Type: Spontaneous
  Country: US (occurrence: US)
  Receive Date: 20180514
  Receipt Date: 20180514
  Transmission Date: 20180711
  Serious: Yes (Other)
  Sender: FDA-Public Use
  Company Number: US-PFIZER INC-2018045806

PATIENT
  Age: 68 Year
  Sex: Female
  Weight: 68.95 kg

DRUGS (4)
  1. TIKOSYN [Suspect]
     Active Substance: DOFETILIDE
     Dosage: 4 DF, DAILY
  2. TIKOSYN [Suspect]
     Active Substance: DOFETILIDE
     Indication: ATRIAL FIBRILLATION
     Dosage: 1 DF, DAILY (8:00 AM)
     Route: 048
  3. TIKOSYN [Suspect]
     Active Substance: DOFETILIDE
     Indication: BLOOD PRESSURE MEASUREMENT
     Dosage: 0.125 MG, 2X/DAY
     Route: 048
     Dates: start: 20180124
  4. TIKOSYN [Suspect]
     Active Substance: DOFETILIDE
     Dosage: 2 DF, DAILY

REACTIONS (6)
  - Bradycardia [Recovering/Resolving]
  - Drug ineffective [Unknown]
  - Blood pressure decreased [Recovered/Resolved]
  - Haematoma [Recovering/Resolving]
  - Weight increased [Unknown]
  - Tachycardia [Recovering/Resolving]

NARRATIVE: CASE EVENT DATE: 20180501
